FAERS Safety Report 9422234 (Version 1)
Quarter: 2013Q3

REPORT INFORMATION
  Report Type: Spontaneous
  Country: US (occurrence: None)
  Receive Date: 20130725
  Receipt Date: 20130725
  Transmission Date: 20140515
  Serious: Yes (Life-Threatening, Hospitalization)
  Sender: FDA-Public Use
  Company Number: None

PATIENT
  Age: 23 Year
  Sex: Female
  Weight: 72.58 kg

DRUGS (1)
  1. BACTRIM [Suspect]
     Indication: URINARY TRACT INFECTION
     Dosage: 1 PILL?
     Route: 048
     Dates: start: 19780705, end: 19780710

REACTIONS (6)
  - Pyrexia [None]
  - Influenza [None]
  - Vomiting [None]
  - Red blood cell count decreased [None]
  - Thrombosis [None]
  - Drug hypersensitivity [None]
